FAERS Safety Report 16536753 (Version 5)
Quarter: 2019Q3

REPORT INFORMATION
  Report Type: Report from Study
  Country: None (occurrence: DE)
  Receive Date: 20190706
  Receipt Date: 20190807
  Transmission Date: 20191004
  Serious: Yes (Death, Hospitalization, Other)
  Sender: FDA-Public Use
  Company Number: DE-ABBVIE-19K-062-2842516-00

PATIENT
  Age: 67 Year
  Sex: Male

DRUGS (22)
  1. COSENTYX [Suspect]
     Active Substance: SECUKINUMAB
     Indication: PSORIASIS
     Route: 058
     Dates: start: 20151015
  2. SPIRONOLACTON [Concomitant]
     Active Substance: SPIRONOLACTONE
     Indication: PRODUCT USED FOR UNKNOWN INDICATION
     Dosage: ()
     Route: 048
     Dates: start: 2009
  3. NOVORAPID [Concomitant]
     Active Substance: INSULIN ASPART
     Indication: PRODUCT USED FOR UNKNOWN INDICATION
     Dosage: ()AS NECESSARY
  4. ENBREL [Concomitant]
     Active Substance: ETANERCEPT
     Dates: start: 20111115, end: 20150911
  5. LEVEMIR [Concomitant]
     Active Substance: INSULIN DETEMIR
     Indication: PRODUCT USED FOR UNKNOWN INDICATION
  6. TRAMAL RETARD [Concomitant]
     Active Substance: TRAMADOL
     Indication: PRODUCT USED FOR UNKNOWN INDICATION
     Dosage: ()AS NECESSARY
  7. PANTOPRAZOLE [Concomitant]
     Active Substance: PANTOPRAZOLE
     Indication: PRODUCT USED FOR UNKNOWN INDICATION
     Route: 048
     Dates: start: 20181119
  8. MORPHIN [Concomitant]
     Active Substance: MORPHINE
     Indication: PRODUCT USED FOR UNKNOWN INDICATION
  9. CODEINE [Concomitant]
     Active Substance: CODEINE
     Indication: PRODUCT USED FOR UNKNOWN INDICATION
     Dosage: AS NECESSARY
  10. FOLIC ACID. [Concomitant]
     Active Substance: FOLIC ACID
     Indication: PRODUCT USED FOR UNKNOWN INDICATION
  11. ENBREL [Concomitant]
     Active Substance: ETANERCEPT
     Indication: PRODUCT USED FOR UNKNOWN INDICATION
     Dates: start: 20100506, end: 20111022
  12. ZINC. [Concomitant]
     Active Substance: ZINC
     Indication: PRODUCT USED FOR UNKNOWN INDICATION
  13. BIFITERAL [Concomitant]
     Active Substance: LACTULOSE
     Indication: PRODUCT USED FOR UNKNOWN INDICATION
  14. VITAMIN B DUO [Concomitant]
     Indication: PRODUCT USED FOR UNKNOWN INDICATION
     Dosage: (1)
  15. NOVAMIN(PROCHLORPERAZINE MALEATE) [Concomitant]
     Active Substance: PROCHLORPERAZINE MALEATE
     Indication: PRODUCT USED FOR UNKNOWN INDICATION
     Dosage: AS NECESSARY
  16. ALLOPURINOL. [Concomitant]
     Active Substance: ALLOPURINOL
     Indication: PRODUCT USED FOR UNKNOWN INDICATION
     Route: 048
     Dates: start: 2009
  17. OMEPRAZOLE. [Concomitant]
     Active Substance: OMEPRAZOLE
     Indication: PRODUCT USED FOR UNKNOWN INDICATION
  18. ELUTIT NATRIUM [Concomitant]
     Indication: PRODUCT USED FOR UNKNOWN INDICATION
     Dosage: 1 TABLESPOON (1)
  19. INSULIN [Concomitant]
     Active Substance: INSULIN NOS
     Indication: LABORATORY TEST ABNORMAL
     Dosage: ()
     Dates: start: 2009
  20. HUMIRA [Suspect]
     Active Substance: ADALIMUMAB
     Indication: PSORIASIS
     Route: 058
     Dates: start: 20181025, end: 20181103
  21. KREON [Suspect]
     Active Substance: PANCRELIPASE
     Indication: PRODUCT USED FOR UNKNOWN INDICATION
     Route: 065
  22. FUROSEMIDE. [Concomitant]
     Active Substance: FUROSEMIDE
     Indication: PRODUCT USED FOR UNKNOWN INDICATION
     Dosage: ()
     Route: 048
     Dates: start: 2009

REACTIONS (44)
  - Ligament injury [Unknown]
  - Diverticulum intestinal [Unknown]
  - Abdominal distension [Unknown]
  - Diarrhoea [Unknown]
  - Pancreatic carcinoma metastatic [Fatal]
  - General physical health deterioration [Unknown]
  - Lung disorder [Unknown]
  - Metastases to spine [Unknown]
  - Gastrooesophageal sphincter insufficiency [Unknown]
  - Renal cyst [Unknown]
  - Anxiety [Unknown]
  - Pancreatic stent placement [Unknown]
  - Pancreatic cyst [Unknown]
  - Fluid intake reduced [Unknown]
  - Hypokalaemia [Unknown]
  - Vomiting [Recovering/Resolving]
  - Hepatic failure [Unknown]
  - Pneumobilia [Unknown]
  - Fall [Unknown]
  - Confusional state [Unknown]
  - Hypophagia [Unknown]
  - Subileus [Unknown]
  - Asthenia [Unknown]
  - Pancreatitis chronic [Unknown]
  - Peritonitis bacterial [Unknown]
  - Malignant neoplasm of pleura [Unknown]
  - Nausea [Not Recovered/Not Resolved]
  - Lymphadenopathy [Unknown]
  - Ascites [Unknown]
  - Gastric disorder [Unknown]
  - Hiatus hernia [Unknown]
  - Pylorus dilatation [Unknown]
  - Laboratory test abnormal [Unknown]
  - Erosive oesophagitis [Unknown]
  - Malignant peritoneal neoplasm [Unknown]
  - Mucosal discolouration [Unknown]
  - Oesophageal fibrosis [Unknown]
  - Hyperkalaemia [Unknown]
  - Hepatic cirrhosis [Not Recovered/Not Resolved]
  - Normochromic normocytic anaemia [Unknown]
  - Acute kidney injury [Unknown]
  - Weight increased [Unknown]
  - Duodenitis [Unknown]
  - Hepatic cyst [Unknown]

NARRATIVE: CASE EVENT DATE: 2019
